FAERS Safety Report 5482903-2 (Version None)
Quarter: 2007Q4

REPORT INFORMATION
  Report Type: 
  Country: None (occurrence: None)
  Receive Date: 20071011
  Receipt Date: 20071001
  Transmission Date: 20080405
  Serious: Yes (Other)
  Sender: FDA-Public Use
  Company Number: US-PFIZER INC-2007027833

PATIENT
  Sex: Female
  Weight: 59.9 kg

DRUGS (2)
  1. CELEBREX [Suspect]
  2. BEXTRA [Suspect]
     Dates: start: 20030825

REACTIONS (1)
  - CEREBROVASCULAR ACCIDENT [None]
